FAERS Safety Report 17663547 (Version 3)
Quarter: 2022Q1

REPORT INFORMATION
  Report Type: Spontaneous
  Country: GB (occurrence: GB)
  Receive Date: 20200413
  Receipt Date: 20220211
  Transmission Date: 20220423
  Serious: Yes (Congenital Anomaly, Other)
  Sender: FDA-Public Use
  Company Number: GB-MHRA-EYC 00220805

PATIENT
  Sex: Male

DRUGS (15)
  1. ONDANSETRON [Suspect]
     Active Substance: ONDANSETRON
     Indication: Vomiting
     Dosage: 4 MILLIGRAM
     Route: 064
  2. CYCLIZINE [Concomitant]
     Active Substance: CYCLIZINE
     Indication: Vomiting
     Dosage: 50 MILLIGRAM, 3 TIMES A DAY
     Route: 064
  3. CYCLIZINE [Concomitant]
     Active Substance: CYCLIZINE
     Dosage: 50 MILLIGRAM, ONCE A DAY(50 MG, QD (14))
     Route: 064
  4. PREDNISOLONE [Concomitant]
     Active Substance: PREDNISOLONE
     Indication: Vomiting
     Dosage: 40 MILLIGRAM, ONCE A DAY
     Route: 064
  5. THIAMINE [Concomitant]
     Active Substance: THIAMINE
     Indication: Vomiting
     Dosage: 50 MILLIGRAM, TWO TIMES A DAY
     Route: 064
  6. THIAMINE [Concomitant]
     Active Substance: THIAMINE
     Dosage: 50 MILLIGRAM, ONCE A DAY(50 MG, QD (14))
     Route: 064
  7. FOLIC ACID [Concomitant]
     Active Substance: FOLIC ACID
     Indication: Vomiting
     Dosage: 5 MILLIGRAM, ONCE A DAY(5 MG, QD (14))
     Route: 064
  8. METOCLOPRAMIDE [Concomitant]
     Active Substance: METOCLOPRAMIDE
     Indication: Vomiting
     Dosage: 10 MILLIGRAM, 3 TIMES A DAY
     Route: 064
  9. METOCLOPRAMIDE [Concomitant]
     Active Substance: METOCLOPRAMIDE
     Indication: Foetal exposure during pregnancy
     Dosage: 10 MILLIGRAM, ONCE A DAY(10 MG, QD (55))
     Route: 064
  10. PROCHLORPERAZINE [Concomitant]
     Active Substance: PROCHLORPERAZINE
     Indication: Vomiting
     Dosage: 10 MILLIGRAM, TWO TIMES A DAY
     Route: 064
  11. PROCHLORPERAZINE [Concomitant]
     Active Substance: PROCHLORPERAZINE
     Dosage: 10 MILLIGRAM, ONCE A DAY(10 MG, QD (14))
     Route: 064
  12. RANITIDINE [Concomitant]
     Active Substance: RANITIDINE
     Indication: Vomiting
     Dosage: 150 MILLIGRAM, TWO TIMES A DAY
     Route: 064
  13. RANITIDINE [Concomitant]
     Active Substance: RANITIDINE
     Dosage: 150 MILLIGRAM, ONCE A DAY(150 MG, QD (14))
     Route: 064
  14. ONDANSETRON [Concomitant]
     Active Substance: ONDANSETRON
     Indication: Vomiting
     Dosage: 4 MILLIGRAM, 3 TIMES A DAY
     Route: 064
  15. ONDANSETRON [Concomitant]
     Active Substance: ONDANSETRON
     Dosage: 4 MILLIGRAM, ONCE A DAY(4 MG, QD)
     Route: 064

REACTIONS (2)
  - Arteriovenous malformation [Not Recovered/Not Resolved]
  - Foetal exposure during pregnancy [Unknown]
